FAERS Safety Report 6664608-5 (Version None)
Quarter: 2010Q1

REPORT INFORMATION
  Report Type: 
  Country: None (occurrence: None)
  Receive Date: 20100330
  Receipt Date: 20091014
  Transmission Date: 20100710
  Serious: Yes (Hospitalization)
  Sender: FDA-Public Use
  Company Number: 6055249

PATIENT
  Age: 75 Year
  Sex: Female

DRUGS (6)
  1. LEVOTHYROXINE SODIUM [Suspect]
     Indication: HYPOTHYROIDISM
     Dosage: 75 MCG (75 MCG)
     Route: 048
  2. ACENOCOUMAROL (ACENOCOUMAROL) [Suspect]
     Indication: THROMBOSIS PROPHYLAXIS
     Route: 048
     Dates: end: 20090329
  3. AMLODIPINE [Concomitant]
  4. CARVEDILOL [Concomitant]
  5. ALDACTONE 25 [Concomitant]
  6. SEGURIL 40 [Concomitant]

REACTIONS (6)
  - BLOOD CREATININE INCREASED [None]
  - DRUG INTERACTION [None]
  - FATIGUE [None]
  - GASTRIC ULCER HAEMORRHAGE [None]
  - HAEMATOCRIT DECREASED [None]
  - MELAENA [None]
